FAERS Safety Report 7366662-4 (Version None)
Quarter: 2011Q1

REPORT INFORMATION
  Report Type: 
  Country: None (occurrence: None)
  Receive Date: 20110322
  Receipt Date: 20110309
  Transmission Date: 20110831
  Serious: Yes (Other)
  Sender: FDA-Public Use
  Company Number: GB-JNJFOC-20110306671

PATIENT
  Age: 72 Year
  Sex: Female
  Weight: 86.3 kg

DRUGS (12)
  1. AMIODARONE HCL [Concomitant]
  2. BETAMETHASONE VALERATE [Concomitant]
  3. ASPIRIN [Concomitant]
  4. TRAMADOL HYDROCHLORIDE [Suspect]
     Indication: PRODUCT USED FOR UNKNOWN INDICATION
     Route: 065
  5. RABEPRAZOLE SODIUM [Concomitant]
  6. SIMVASTATIN [Concomitant]
  7. SIMVASTATIN [Concomitant]
  8. AMIODARONE HCL [Concomitant]
  9. IBUPROFEN [Concomitant]
  10. VALSARTAN [Concomitant]
  11. ASPIRIN [Concomitant]
  12. VALSARTAN [Concomitant]

REACTIONS (1)
  - AGEUSIA [None]
